FAERS Safety Report 12184026 (Version 17)
Quarter: 2018Q2

REPORT INFORMATION
  Report Type: Report from Study
  Country: US (occurrence: US)
  Receive Date: 20160316
  Receipt Date: 20180628
  Transmission Date: 20180711
  Serious: Yes (Hospitalization)
  Sender: FDA-Public Use
  Company Number: US-ACTELION-A-US2016-132495

PATIENT
  Age: 53 Year
  Sex: Female
  Weight: 68.27 kg

DRUGS (16)
  1. VELETRI [Suspect]
     Active Substance: EPOPROSTENOL
     Indication: PULMONARY ARTERIAL HYPERTENSION
     Dosage: 32.6 NG/KG, PER MIN
     Route: 042
  2. LEVEMIR [Concomitant]
     Active Substance: INSULIN DETEMIR
  3. TRAMADOL. [Concomitant]
     Active Substance: TRAMADOL
  4. ZYRTEC [Concomitant]
     Active Substance: CETIRIZINE HYDROCHLORIDE
  5. OPSUMIT [Suspect]
     Active Substance: MACITENTAN
     Indication: PULMONARY ARTERIAL HYPERTENSION
     Dosage: 10 MG, QD
     Route: 048
     Dates: start: 20151221
  6. VELETRI [Suspect]
     Active Substance: EPOPROSTENOL
     Dosage: 26 NG/KG, PER MIN
     Route: 042
     Dates: start: 20110428
  7. TOPROL XL [Concomitant]
     Active Substance: METOPROLOL SUCCINATE
  8. SINGULAIR [Concomitant]
     Active Substance: MONTELUKAST SODIUM
  9. TYLENOL [Concomitant]
     Active Substance: ACETAMINOPHEN
  10. COUMADIN [Concomitant]
     Active Substance: WARFARIN SODIUM
  11. DIGOXIN. [Concomitant]
     Active Substance: DIGOXIN
  12. LASIX [Concomitant]
     Active Substance: FUROSEMIDE
  13. GABAPENTIN. [Concomitant]
     Active Substance: GABAPENTIN
  14. CLONAZEPAM. [Concomitant]
     Active Substance: CLONAZEPAM
  15. WARFARIN [Concomitant]
     Active Substance: WARFARIN
  16. SPIRONOLACTONE. [Concomitant]
     Active Substance: SPIRONOLACTONE

REACTIONS (34)
  - Pyrexia [Recovered/Resolved]
  - Sputum purulent [Not Recovered/Not Resolved]
  - Sneezing [Recovered/Resolved]
  - Haematemesis [Unknown]
  - Oedema peripheral [Recovered/Resolved]
  - Seasonal allergy [Recovered/Resolved]
  - Ascites [Recovered/Resolved]
  - Gastrooesophageal reflux disease [Unknown]
  - Weight increased [Recovered/Resolved]
  - Fatigue [Recovered/Resolved]
  - Pneumonia [Recovered/Resolved with Sequelae]
  - Platelet count increased [Recovered/Resolved]
  - Epistaxis [Recovered/Resolved]
  - Condition aggravated [Recovered/Resolved]
  - Peripheral swelling [Recovered/Resolved]
  - Respiratory failure [Recovered/Resolved]
  - Lacrimation increased [Recovered/Resolved]
  - Sputum discoloured [Recovered/Resolved with Sequelae]
  - Pneumothorax [Unknown]
  - Haemoptysis [Recovered/Resolved]
  - Chronic obstructive pulmonary disease [Unknown]
  - Oxygen saturation decreased [Recovered/Resolved]
  - Pulmonary hypertension [Recovered/Resolved]
  - Flushing [Unknown]
  - Infection [Recovered/Resolved]
  - Dyspnoea [Unknown]
  - Atelectasis [Recovered/Resolved]
  - Pneumonia bacterial [Recovered/Resolved]
  - Influenza [Unknown]
  - Dyspnoea exertional [Not Recovered/Not Resolved]
  - Hypoxia [Recovered/Resolved]
  - Abdominal distension [Recovered/Resolved]
  - Productive cough [Recovered/Resolved]
  - Pain in jaw [Unknown]

NARRATIVE: CASE EVENT DATE: 20160210
